FAERS Safety Report 24288665 (Version 1)
Quarter: 2024Q3

REPORT INFORMATION
  Report Type: Report from Study
  Country: US (occurrence: US)
  Receive Date: 20240906
  Receipt Date: 20240906
  Transmission Date: 20241016
  Serious: No
  Sender: BIOVITRUM
  Company Number: US-BIOVITRUM-2024-US-011695

PATIENT
  Age: 78 Year
  Sex: Female

DRUGS (1)
  1. DOPTELET [Suspect]
     Active Substance: AVATROMBOPAG MALEATE
     Indication: Immune thrombocytopenia
     Dosage: 1 TIME A DAY
     Route: 048
     Dates: start: 202408, end: 202408

REACTIONS (3)
  - Nausea [Unknown]
  - Rhinorrhoea [Unknown]
  - Abdominal pain [Unknown]
